FAERS Safety Report 21494155 (Version 2)
Quarter: 2022Q4

REPORT INFORMATION
  Report Type: Report from Study
  Country: US (occurrence: US)
  Receive Date: 20221021
  Receipt Date: 20221031
  Transmission Date: 20230113
  Serious: Yes (Other)
  Sender: FDA-Public Use
  Company Number: US-BRISTOL-MYERS SQUIBB COMPANY-2022-097252

PATIENT
  Age: 34 Year
  Sex: Male
  Weight: 74.3 kg

DRUGS (4)
  1. POMALYST [Suspect]
     Active Substance: POMALIDOMIDE
     Indication: Plasma cell myeloma
     Dosage: EXPIRY DATE 31-JAN-2026. FREQUENCY: TAKE 1 CAPSULE EVERY DAY FOR 21 DAYS FOLLOWED BY A 7-DAY REST PE
     Route: 048
     Dates: start: 20220126
  2. POMALYST [Suspect]
     Active Substance: POMALIDOMIDE
     Route: 048
  3. ELIQUIS [Concomitant]
     Active Substance: APIXABAN
     Indication: Thrombosis
     Route: 065
  4. IVERMECTIN [Concomitant]
     Active Substance: IVERMECTIN
     Indication: Product used for unknown indication

REACTIONS (4)
  - Plasma cell myeloma [Unknown]
  - Drug ineffective [Unknown]
  - Bone neoplasm [Unknown]
  - Renal failure [Unknown]
